FAERS Safety Report 6850858-1 (Version None)
Quarter: 2010Q3

REPORT INFORMATION
  Report Type: 
  Country: None (occurrence: None)
  Receive Date: 20100716
  Receipt Date: 20100709
  Transmission Date: 20110219
  Serious: Yes (Other)
  Sender: FDA-Public Use
  Company Number: GR-AMGEN-KDC423529

PATIENT
  Sex: Male

DRUGS (1)
  1. DENOSUMAB [Suspect]
     Indication: PROSTATE CANCER
     Route: 058
     Dates: start: 20100317

REACTIONS (1)
  - OSTEONECROSIS OF JAW [None]
